FAERS Safety Report 8836053 (Version 1)
Quarter: 2012Q4

REPORT INFORMATION
  Report Type: 
  Country: US (occurrence: US)
  Receive Date: 20121011
  Receipt Date: 20121011
  Transmission Date: 20130627
  Serious: Yes (Hospitalization)
  Sender: FDA-Public Use
  Company Number: US-VALEANT-2012VX004421

PATIENT
  Age: 56 Year
  Sex: Female

DRUGS (13)
  1. TIMOPTIC [Suspect]
     Indication: INTRAOCULAR PRESSURE INCREASED
     Route: 047
  2. TOPIRAMATE [Suspect]
     Indication: MIGRAINE
     Route: 065
  3. TOPIRAMATE [Suspect]
     Indication: MIGRAINE
     Route: 065
  4. ACETAZOLAMIDE [Suspect]
     Indication: INTRAOCULAR PRESSURE INCREASED
     Route: 042
  5. BRIMONIDINE TARTRATE [Suspect]
     Indication: INTRAOCULAR PRESSURE INCREASED
     Route: 047
  6. PREDNISOLONE [Suspect]
     Indication: INTRAOCULAR PRESSURE INCREASED
     Route: 047
  7. ATROPINE [Suspect]
     Indication: INTRAOCULAR PRESSURE INCREASED
     Route: 047
  8. VENLAFAXINE HYDROCHLORIDE [Concomitant]
     Route: 065
  9. ATORVASTATIN [Concomitant]
     Route: 065
  10. BUSPIRONE HYDROCHLORIDE [Concomitant]
     Route: 065
  11. MAXIDE [Concomitant]
     Route: 065
  12. ESTRADIOL [Concomitant]
     Route: 065
  13. PROGESTERONE [Concomitant]
     Route: 065

REACTIONS (6)
  - Drug ineffective [Unknown]
  - Eye pain [Recovering/Resolving]
  - Photophobia [Unknown]
  - Vision blurred [Unknown]
  - Photopsia [Unknown]
  - Ocular discomfort [Unknown]
